FAERS Safety Report 5496656-5 (Version None)
Quarter: 2007Q4

REPORT INFORMATION
  Report Type: 
  Country: None (occurrence: None)
  Receive Date: 20071025
  Receipt Date: 20070713
  Transmission Date: 20080405
  Serious: No
  Sender: FDA-Public Use
  Company Number: A0660723A

PATIENT
  Age: 66 Year
  Sex: Male
  Weight: 89.5 kg

DRUGS (2)
  1. ADVAIR DISKUS 100/50 [Suspect]
     Route: 055
  2. NO CONCURRENT MEDICATIONS [Concomitant]

REACTIONS (1)
  - URTICARIA [None]
